FAERS Safety Report 25109057 (Version 1)
Quarter: 2025Q1

REPORT INFORMATION
  Report Type: Spontaneous
  Country: US (occurrence: US)
  Receive Date: 20250322
  Receipt Date: 20250322
  Transmission Date: 20250409
  Serious: No
  Sender: LUPIN
  Company Number: US-LUPIN PHARMACEUTICALS INC.-2025-01739

PATIENT
  Age: 17 Year

DRUGS (1)
  1. ALBUTEROL SULFATE [Suspect]
     Active Substance: ALBUTEROL SULFATE
     Indication: Asthma
     Dosage: UNK, QID, 2 PUFFS EVERY 4 HOURS

REACTIONS (4)
  - Wrong technique in product usage process [Unknown]
  - Device deposit issue [Unknown]
  - Device malfunction [Unknown]
  - No adverse event [Unknown]
